FAERS Safety Report 12884638 (Version 1)
Quarter: 2016Q4

REPORT INFORMATION
  Report Type: Spontaneous
  Country: PL (occurrence: PL)
  Receive Date: 20161026
  Receipt Date: 20161026
  Transmission Date: 20170207
  Serious: Yes (Hospitalization, Other)
  Sender: FDA-Public Use
  Company Number: PL-SUN PHARMACEUTICAL INDUSTRIES LTD-2016R1-126455

PATIENT
  Age: 79 Year
  Sex: Female

DRUGS (1)
  1. PREDNISONE. [Suspect]
     Active Substance: PREDNISONE
     Indication: MYOSITIS
     Dosage: 20 MG, DAILY
     Route: 065

REACTIONS (3)
  - Tuberculosis [Recovering/Resolving]
  - Therapeutic response decreased [Unknown]
  - Drug resistance [Unknown]
